FAERS Safety Report 9740701 (Version 1)
Quarter: 2013Q4

REPORT INFORMATION
  Report Type: Spontaneous
  Country: US (occurrence: US)
  Receive Date: 20131209
  Receipt Date: 20131209
  Transmission Date: 20140711
  Serious: No
  Sender: FDA-Public Use
  Company Number: US-BIOGENIDEC-2013BI099299

PATIENT
  Age: 42 Year
  Sex: Female

DRUGS (2)
  1. TECFIDERA [Suspect]
     Indication: RELAPSING-REMITTING MULTIPLE SCLEROSIS
     Dates: start: 201309
  2. TECFIDERA [Suspect]
     Indication: RELAPSING-REMITTING MULTIPLE SCLEROSIS
     Dates: start: 20130920

REACTIONS (5)
  - Feeling abnormal [Not Recovered/Not Resolved]
  - Aphagia [Not Recovered/Not Resolved]
  - Drug intolerance [Unknown]
  - Malaise [Unknown]
  - Nausea [Not Recovered/Not Resolved]
